FAERS Safety Report 17913856 (Version 1)
Quarter: 2020Q2

REPORT INFORMATION
  Report Type: Spontaneous
  Country: US (occurrence: US)
  Receive Date: 20200618
  Receipt Date: 20200618
  Transmission Date: 20200714
  Serious: Yes (Other)
  Sender: FDA-Public Use
  Company Number: US-ABBVIE-20K-163-3449398-00

PATIENT
  Age: 10 Year
  Sex: Male
  Weight: 52 kg

DRUGS (7)
  1. TOPIRAMATE. [Concomitant]
     Active Substance: TOPIRAMATE
     Indication: PRODUCT USED FOR UNKNOWN INDICATION
     Dates: end: 2019
  2. EPIDIOLEX [Suspect]
     Active Substance: CANNABIDIOL
     Dosage: DAILY DOSE 7.67 MG/KGMG/KG, 200 MILLIGRAM, BID ORAL
     Route: 048
     Dates: start: 20190802, end: 20190810
  3. EPIDIOLEX [Suspect]
     Active Substance: CANNABIDIOL
     Indication: EPILEPSY
     Dosage: DAILY DOSE 11.54 MG/KG, 300 MILLIGRAM, BID, DURATION 2 MONTHS 4 DAYS
     Route: 048
     Dates: start: 20190530, end: 20190802
  4. VALPROIC ACID. [Suspect]
     Active Substance: VALPROIC ACID
     Dosage: DOSE REDUCED TO 375/500
     Route: 065
     Dates: start: 201909
  5. VALPROIC ACID. [Suspect]
     Active Substance: VALPROIC ACID
     Indication: PRODUCT USED FOR UNKNOWN INDICATION
     Route: 065
     Dates: start: 201902, end: 20190802
  6. VALPROIC ACID. [Suspect]
     Active Substance: VALPROIC ACID
     Route: 065
     Dates: start: 20190802, end: 201909
  7. ONFI [Concomitant]
     Active Substance: CLOBAZAM
     Indication: PRODUCT USED FOR UNKNOWN INDICATION
     Dates: start: 2019

REACTIONS (9)
  - Anaemia macrocytic [Not Recovered/Not Resolved]
  - Enuresis [Unknown]
  - Haemolytic anaemia [Recovered/Resolved]
  - Urine odour abnormal [Recovered/Resolved]
  - Diarrhoea [Recovered/Resolved]
  - Thrombocytopenia [Not Recovered/Not Resolved]
  - Abdominal discomfort [Unknown]
  - Chromaturia [Recovered/Resolved]
  - Vomiting [Recovered/Resolved]
